FAERS Safety Report 5579061-2 (Version None)
Quarter: 2007Q4

REPORT INFORMATION
  Report Type: 
  Country: None (occurrence: None)
  Receive Date: 20071228
  Receipt Date: 20071228
  Transmission Date: 20080405
  Serious: Yes (Other)
  Sender: FDA-Public Use
  Company Number: None

PATIENT
  Age: 42 Year
  Sex: Female
  Weight: 72.5755 kg

DRUGS (2)
  1. AMBIEN [Suspect]
     Indication: FIBROMYALGIA
     Dosage: 10MG HS PO
     Route: 048
     Dates: start: 20040301, end: 20071028
  2. AMBIEN [Suspect]
     Indication: INSOMNIA
     Dosage: 10MG HS PO
     Route: 048
     Dates: start: 20040301, end: 20071028

REACTIONS (2)
  - SLEEP-RELATED EATING DISORDER [None]
  - SOMNAMBULISM [None]
